FAERS Safety Report 7563363-4 (Version None)
Quarter: 2011Q2

REPORT INFORMATION
  Report Type: 
  Country: None (occurrence: None)
  Receive Date: 20110622
  Receipt Date: 20110614
  Transmission Date: 20111010
  Serious: Yes (Hospitalization, Other)
  Sender: FDA-Public Use
  Company Number: A0927981A

PATIENT
  Age: 20 Year
  Sex: Female

DRUGS (3)
  1. PROMACTA [Suspect]
     Indication: EVANS SYNDROME
     Dosage: 50MG PER DAY
     Dates: start: 20100708, end: 20101121
  2. ORAL CONTRACEPTIVES [Concomitant]
  3. IMMUNE GLOBULIN INTRAVENOUS (HUMAN) [Concomitant]

REACTIONS (8)
  - DRUG INEFFECTIVE [None]
  - PULMONARY EMBOLISM [None]
  - CHEST PAIN [None]
  - TACHYPNOEA [None]
  - PYREXIA [None]
  - SINUS TACHYCARDIA [None]
  - ELECTROCARDIOGRAM ST-T CHANGE [None]
  - PLATELET COUNT INCREASED [None]
